FAERS Safety Report 9384073 (Version 1)
Quarter: 2013Q3

REPORT INFORMATION
  Report Type: Spontaneous
  Country: US (occurrence: US)
  Receive Date: 20130705
  Receipt Date: 20130705
  Transmission Date: 20140515
  Serious: Yes (Hospitalization, Other)
  Sender: FDA-Public Use
  Company Number: US-JNJFOC-20130618047

PATIENT
  Age: 22 Year
  Sex: Female

DRUGS (2)
  1. ACETAMINOPHEN [Suspect]
     Route: 048
  2. ACETAMINOPHEN [Suspect]
     Indication: TOOTHACHE
     Dosage: FOR 2 WEEKS.
     Route: 048

REACTIONS (10)
  - Overdose [Unknown]
  - Acute hepatic failure [Unknown]
  - Hepatic encephalopathy [Unknown]
  - Exposure during pregnancy [Unknown]
  - Liver transplant [None]
  - Anastomotic haemorrhage [None]
  - Post procedural complication [None]
  - Haemolytic anaemia [None]
  - Thrombocytopenia [None]
  - Graft versus host disease [None]
